FAERS Safety Report 4514169-1 (Version None)
Quarter: 2004Q4

REPORT INFORMATION
  Report Type: 
  Country: None (occurrence: None)
  Receive Date: 20041129
  Receipt Date: 20041117
  Transmission Date: 20050328
  Serious: Yes (Hospitalization)
  Sender: FDA-Public Use
  Company Number: 2004094847

PATIENT
  Age: 15 Year
  Sex: Female

DRUGS (1)
  1. UNISOM [Suspect]
     Indication: INTENTIONAL OVERDOSE
     Dosage: 14 LIQUIDCAPS ONCE, ORAL
     Route: 048
     Dates: start: 20041117, end: 20041117

REACTIONS (3)
  - DEPRESSION [None]
  - INTENTIONAL OVERDOSE [None]
  - VISION BLURRED [None]
